FAERS Safety Report 15365842 (Version 5)
Quarter: 2019Q2

REPORT INFORMATION
  Report Type: Spontaneous
  Country: US (occurrence: US)
  Receive Date: 20180910
  Receipt Date: 20190605
  Transmission Date: 20190711
  Serious: No
  Sender: FDA-Public Use
  Company Number: US-PFIZER INC-2018364159

PATIENT
  Age: 71 Year
  Sex: Male
  Weight: 119.7 kg

DRUGS (1)
  1. GABAPENTIN. [Suspect]
     Active Substance: GABAPENTIN
     Indication: DIABETIC NEUROPATHY
     Dosage: UNK

REACTIONS (6)
  - Product use in unapproved indication [Unknown]
  - Off label use [Unknown]
  - Palpitations [Unknown]
  - Drug hypersensitivity [Not Recovered/Not Resolved]
  - Eye swelling [Unknown]
  - Rash [Not Recovered/Not Resolved]
